FAERS Safety Report 25835303 (Version 2)
Quarter: 2025Q4

REPORT INFORMATION
  Report Type: Spontaneous
  Country: US (occurrence: US)
  Receive Date: 20250923
  Receipt Date: 20251021
  Transmission Date: 20260118
  Serious: Yes (Hospitalization)
  Sender: FENNEC PHARMACEUTICALS
  Company Number: US-FENNEC PHARMACEUTICALS, INC.-2025FEN00082

PATIENT
  Sex: Male
  Weight: 85.53 kg

DRUGS (16)
  1. PEDMARK [Suspect]
     Active Substance: SODIUM THIOSULFATE
     Indication: Chemotherapy side effect prophylaxis
     Dosage: CYCLE #1: 41.2 GRAMS (20 MG/M2) OVER 60 MINUTES/4 VIALS PER INFUSION
     Route: 042
     Dates: start: 20250804, end: 20250808
  2. PEDMARK [Suspect]
     Active Substance: SODIUM THIOSULFATE
     Dosage: CYCLE #2: 41.2 GRAMS (20 MG/M2) OVER 60 MINUTES
     Route: 042
     Dates: start: 20250825, end: 20250829
  3. PEDMARK [Suspect]
     Active Substance: SODIUM THIOSULFATE
     Dosage: CYCLE #3: 41.2 GRAMS (20 MG/M2) OVER 60 MINUTES
     Route: 042
     Dates: start: 20251006, end: 20251010
  4. UNSPECIFIED INGREDIENT [Suspect]
     Active Substance: UNSPECIFIED INGREDIENT
     Dosage: UNK
  5. PROCHLORPERAZINE [Concomitant]
     Active Substance: PROCHLORPERAZINE
     Dosage: 10 MG
     Route: 042
  6. PROCHLORPERAZINE [Concomitant]
     Active Substance: PROCHLORPERAZINE
     Dosage: 10 MG
     Route: 048
  7. CISPLATIN [Concomitant]
     Active Substance: CISPLATIN
  8. LORAZEPAM [Concomitant]
     Active Substance: LORAZEPAM
     Dosage: 0.5 MG, 30 TO 60 MINS PRIOR TO PEDMARK
     Route: 048
     Dates: end: 20250805
  9. LORAZEPAM [Concomitant]
     Active Substance: LORAZEPAM
     Dosage: 1 MG, 30 TO 60 MINS PRIOR TO PEDMARK
     Route: 048
     Dates: start: 20250806
  10. ZYPREXA [Concomitant]
     Active Substance: OLANZAPINE
     Dosage: 5 MG, AT BEDTIME THE NIGHT BEFORE PEDMARK
     Route: 048
  11. DEXAMETHASONE [Concomitant]
     Active Substance: DEXAMETHASONE
     Dosage: 8 MG, 1X/DAY ON DAYS 6-8 OF CHEMOTHERAPY
     Route: 048
  12. DEXAMETHASONE [Concomitant]
     Active Substance: DEXAMETHASONE
     Dosage: 10 MG, 30 MINS PRIOR TO PEDMARK
     Route: 048
  13. PEPCID [Concomitant]
     Active Substance: FAMOTIDINE
     Dosage: 20 MG, BEFORE PEDMARK
  14. BENADRYL [Concomitant]
     Active Substance: DIPHENHYDRAMINE HYDROCHLORIDE
     Dosage: 25 MG, 30 MINS BEFORE PEDMARK
     Route: 048
  15. ZOFRAN [Concomitant]
     Active Substance: ONDANSETRON HYDROCHLORIDE
     Dosage: 4-8 MG, EVERY 8 HOURS AS NEEDED
  16. FAMOTIDINE [Concomitant]
     Active Substance: FAMOTIDINE
     Dosage: 20 MG, 1 HOUR BEFORE PEDMARK
     Route: 042

REACTIONS (24)
  - Influenza [Recovered/Resolved]
  - White blood cell count decreased [Not Recovered/Not Resolved]
  - Illness [Not Recovered/Not Resolved]
  - Chills [Unknown]
  - Sneezing [Unknown]
  - Lethargy [Not Recovered/Not Resolved]
  - Balance disorder [Recovered/Resolved]
  - Constipation [Recovered/Resolved]
  - Fatigue [Unknown]
  - Asthenia [Unknown]
  - Dry mouth [Unknown]
  - Oral candidiasis [Unknown]
  - Abnormal weight gain [Unknown]
  - Tinnitus [Unknown]
  - Abdominal pain [Unknown]
  - Abdominal distension [Unknown]
  - Hiccups [Unknown]
  - Platelet count decreased [Not Recovered/Not Resolved]
  - Nausea [Unknown]
  - Vomiting [Unknown]
  - Pyrexia [Unknown]
  - Blood pressure diastolic increased [Unknown]
  - Incorrect dose administered [Unknown]
  - Off label use [Not Recovered/Not Resolved]

NARRATIVE: CASE EVENT DATE: 20250101
